FAERS Safety Report 8952957 (Version 4)
Quarter: 2013Q3

REPORT INFORMATION
  Report Type: Spontaneous
  Country: US (occurrence: US)
  Receive Date: 20121203
  Receipt Date: 20130815
  Transmission Date: 20140515
  Serious: Yes (Life-Threatening, Other)
  Sender: FDA-Public Use
  Company Number: CHPA2012US024527

PATIENT
  Sex: Female

DRUGS (6)
  1. TAVIST ALLERGY (FORMERLY TAVIST-1) TABS [Suspect]
     Indication: HYPERSENSITIVITY
     Dosage: 0.5 DF, PRN
     Route: 048
  2. TAVIST ALLERGY (FORMERLY TAVIST-1) TABS [Suspect]
     Indication: RASH
  3. TAVIST ALLERGY (FORMERLY TAVIST-1) TABS [Suspect]
     Indication: RHINITIS
  4. TAVIST ALLERGY (FORMERLY TAVIST-1) TABS [Suspect]
     Indication: RHINORRHOEA
  5. ALBUTEROL SULFATE [Concomitant]
     Indication: HYPERSENSITIVITY
     Dosage: UNK, UNK
  6. CLEMASTINE FUMARATE [Concomitant]
     Indication: HYPERSENSITIVITY
     Dosage: UNK, PRN

REACTIONS (10)
  - Dyspnoea [Recovered/Resolved]
  - Glaucoma [Not Recovered/Not Resolved]
  - Ankle fracture [Recovered/Resolved]
  - Hypersensitivity [Not Recovered/Not Resolved]
  - Rash [Recovered/Resolved]
  - Therapeutic response unexpected [Unknown]
  - Off label use [Unknown]
  - Expired drug administered [Unknown]
  - Wrong technique in drug usage process [Unknown]
  - Underdose [Unknown]
